FAERS Safety Report 10494534 (Version 1)
Quarter: 2014Q4

REPORT INFORMATION
  Report Type: Spontaneous
  Country: US (occurrence: None)
  Receive Date: 20141002
  Receipt Date: 20141002
  Transmission Date: 20150528
  Serious: Yes (Other)
  Sender: FDA-Public Use
  Company Number: None

PATIENT
  Age: 53 Year
  Sex: Male

DRUGS (1)
  1. SUTENT [Suspect]
     Active Substance: SUNITINIB MALATE
     Indication: RENAL CANCER
     Dosage: QDX 4 WKS AND 2WKS OFF.,PO.
     Route: 048
     Dates: start: 20140906

REACTIONS (4)
  - Oral pain [None]
  - Fatigue [None]
  - Stomatitis [None]
  - Eating disorder [None]

NARRATIVE: CASE EVENT DATE: 20140924
